FAERS Safety Report 4979796-6 (Version None)
Quarter: 2006Q1

REPORT INFORMATION
  Report Type: 
  Country: None (occurrence: None)
  Receive Date: 20060227
  Receipt Date: 20051205
  Transmission Date: 20060701
  Serious: No
  Sender: FDA-Public Use
  Company Number: PHEH2005US13235

PATIENT
  Age: 71 Year
  Sex: Male

DRUGS (3)
  1. ENABLEX [Suspect]
     Indication: BLADDER DISORDER
     Dosage: 15 MG, ONCE/SINGLE,
  2. COREG [Concomitant]
  3. ADVICOR [Concomitant]

REACTIONS (4)
  - DIARRHOEA [None]
  - DIZZINESS [None]
  - MALAISE [None]
  - NAUSEA [None]
